FAERS Safety Report 5981627-2 (Version None)
Quarter: 2008Q4

REPORT INFORMATION
  Report Type: 
  Country: None (occurrence: None)
  Receive Date: 20081205
  Receipt Date: 20081125
  Transmission Date: 20090506
  Serious: Yes (Hospitalization, Other)
  Sender: FDA-Public Use
  Company Number: GB-JNJFOC-20071110040

PATIENT
  Sex: Female

DRUGS (3)
  1. TOPAMAX [Suspect]
     Indication: EPILEPSY
     Route: 048
  2. PHENITOIN [Concomitant]
     Route: 065
  3. LYRICA [Concomitant]
     Indication: DRUG USE FOR UNKNOWN INDICATION
     Route: 065

REACTIONS (11)
  - ABDOMINAL PAIN UPPER [None]
  - BLISTER [None]
  - CONVULSION [None]
  - DRUG INEFFECTIVE [None]
  - DYSPEPSIA [None]
  - HAEMATEMESIS [None]
  - HEPATIC ENZYME INCREASED [None]
  - PRURITUS [None]
  - RENAL PAIN [None]
  - SKIN EXFOLIATION [None]
  - THIRST [None]
